FAERS Safety Report 10915962 (Version 1)
Quarter: 2015Q1

REPORT INFORMATION
  Report Type: Spontaneous
  Country: US (occurrence: None)
  Receive Date: 20150311
  Receipt Date: 20150311
  Transmission Date: 20150721
  Serious: No
  Sender: FDA-Public Use
  Company Number: None

PATIENT
  Age: 37 Year
  Sex: Female
  Weight: 81.65 kg

DRUGS (10)
  1. TOPAMAX [Suspect]
     Active Substance: TOPIRAMATE
     Indication: WEIGHT CONTROL
     Dosage: 1 PILL, TWICE DAILY, BY MOUTH
     Route: 048
     Dates: start: 201409, end: 201409
  2. CLINDAMYCIN [Concomitant]
     Active Substance: CLINDAMYCIN\CLINDAMYCIN PHOSPHATE
  3. MOTRIN [Concomitant]
     Active Substance: IBUPROFEN
  4. LOROTUB [Concomitant]
  5. TOPAMAX [Suspect]
     Active Substance: TOPIRAMATE
     Indication: MIGRAINE
     Dosage: 1 PILL, TWICE DAILY, BY MOUTH
     Route: 048
     Dates: start: 201409, end: 201409
  6. BACLOFEN. [Concomitant]
     Active Substance: BACLOFEN
  7. PERCOCETS [Concomitant]
  8. VALIUM [Concomitant]
     Active Substance: DIAZEPAM
  9. TUMS [Concomitant]
     Active Substance: CALCIUM CARBONATE
  10. TOVIAS [Concomitant]

REACTIONS (1)
  - Urinary incontinence [None]

NARRATIVE: CASE EVENT DATE: 201409
